FAERS Safety Report 18839341 (Version 6)
Quarter: 2022Q1

REPORT INFORMATION
  Report Type: Spontaneous
  Country: IN (occurrence: IN)
  Receive Date: 20210203
  Receipt Date: 20220214
  Transmission Date: 20220423
  Serious: Yes (Other)
  Sender: FDA-Public Use
  Company Number: IN-PFIZER INC-2020366096

PATIENT
  Age: 45 Year
  Sex: Female

DRUGS (3)
  1. PALBOCICLIB [Suspect]
     Active Substance: PALBOCICLIB
     Indication: Breast cancer metastatic
     Dosage: 125 MG, 1X/DAY (7 DAYS REST- SECOND CYCLE)
     Route: 048
     Dates: start: 20200806
  2. FEMARA [Concomitant]
     Active Substance: LETROZOLE
     Dosage: 25 MG, 1X/DAY (25 MG, OD X  YEAR)
  3. CALCIMAX 500 [Concomitant]
     Dosage: 500 MG, 1X/DAY (500 MG X OD  X 6 MONTH)

REACTIONS (9)
  - Hyperthyroidism [Unknown]
  - Dengue fever [Unknown]
  - Haemoglobin decreased [Unknown]
  - White blood cell count decreased [Unknown]
  - Cough [Unknown]
  - Asthenia [Unknown]
  - Dry skin [Unknown]
  - Stress [Unknown]
  - Neoplasm progression [Unknown]

NARRATIVE: CASE EVENT DATE: 20201101
